FAERS Safety Report 12669461 (Version 2)
Quarter: 2016Q3

REPORT INFORMATION
  Report Type: Spontaneous
  Country: US (occurrence: US)
  Receive Date: 20160819
  Receipt Date: 20160916
  Transmission Date: 20161109
  Serious: Yes (Hospitalization)
  Sender: FDA-Public Use
  Company Number: US-VERTEX PHARMACEUTICALS-2016-004842

PATIENT
  Age: 18 Year
  Sex: Male

DRUGS (6)
  1. DESONIDE. [Concomitant]
     Active Substance: DESONIDE
  2. ORKAMBI [Suspect]
     Active Substance: IVACAFTOR\LUMACAFTOR
     Indication: CYSTIC FIBROSIS
     Dosage: 400MG-250MG, BID
     Route: 048
     Dates: start: 20150731
  3. ALBUTEROL. [Concomitant]
     Active Substance: ALBUTEROL
  4. NOVOLOG [Concomitant]
     Active Substance: INSULIN ASPART
  5. URSODIOL. [Concomitant]
     Active Substance: URSODIOL
  6. TRIAMCINOLONE [Concomitant]
     Active Substance: TRIAMCINOLONE

REACTIONS (1)
  - Infective pulmonary exacerbation of cystic fibrosis [Recovered/Resolved]

NARRATIVE: CASE EVENT DATE: 201608
